FAERS Safety Report 6517815-6 (Version None)
Quarter: 2009Q4

REPORT INFORMATION
  Report Type: 
  Country: None (occurrence: None)
  Receive Date: 20091224
  Receipt Date: 20091223
  Transmission Date: 20100525
  Serious: Yes (Hospitalization)
  Sender: FDA-Public Use
  Company Number: US-PURDUE-USA-2009-0040693

PATIENT
  Age: 80 Year
  Sex: Female

DRUGS (1)
  1. RYZOLT [Suspect]
     Indication: PAIN
     Dosage: 200 MG, DAILY
     Dates: start: 20090827, end: 20091019

REACTIONS (1)
  - PANCREATITIS [None]
